FAERS Safety Report 19436753 (Version 1)
Quarter: 2021Q2

REPORT INFORMATION
  Report Type: Spontaneous
  Country: US (occurrence: US)
  Receive Date: 20210618
  Receipt Date: 20210618
  Transmission Date: 20210717
  Serious: Yes (Other)
  Sender: FDA-Public Use
  Company Number: US-IPSEN BIOPHARMACEUTICALS, INC.-2021-15018

PATIENT
  Age: 31 Year
  Sex: Female

DRUGS (6)
  1. RESTYLANE [Suspect]
     Active Substance: HYALURONIC ACID
     Indication: SKIN WRINKLING
     Dates: start: 20210325
  2. PROGESTERONE. [Concomitant]
     Active Substance: PROGESTERONE
  3. DYSPORT [Suspect]
     Active Substance: ABOBOTULINUMTOXINA
     Indication: SKIN WRINKLING
  4. DYSPORT [Suspect]
     Active Substance: ABOBOTULINUMTOXINA
     Indication: OFF LABEL USE
  5. DYSPORT [Suspect]
     Active Substance: ABOBOTULINUMTOXINA
     Indication: SKIN WRINKLING
     Dosage: 96 IU
     Route: 065
     Dates: start: 20210325, end: 20210325
  6. DYSPORT [Suspect]
     Active Substance: ABOBOTULINUMTOXINA
     Indication: SKIN WRINKLING

REACTIONS (9)
  - Atrial fibrillation [Unknown]
  - Systemic lupus erythematosus [Unknown]
  - Negative thoughts [Unknown]
  - Product preparation error [Unknown]
  - Postural orthostatic tachycardia syndrome [Unknown]
  - Mast cell activation syndrome [Unknown]
  - Urinary incontinence [Unknown]
  - Orthostatic hypotension [Unknown]
  - Off label use [Unknown]

NARRATIVE: CASE EVENT DATE: 202103
